FAERS Safety Report 23251676 (Version 2)
Quarter: 2023Q4

REPORT INFORMATION
  Report Type: Spontaneous
  Country: BR (occurrence: BR)
  Receive Date: 20231201
  Receipt Date: 20231207
  Transmission Date: 20240110
  Serious: Yes (Other)
  Sender: FDA-Public Use
  Company Number: BR-TAKEDA-2023TUS115695

PATIENT
  Sex: Female

DRUGS (4)
  1. LISDEXAMFETAMINE DIMESYLATE [Suspect]
     Active Substance: LISDEXAMFETAMINE DIMESYLATE
     Indication: Product used for unknown indication
     Dosage: UNK UNK, Q4WEEKS
     Route: 048
  2. LISDEXAMFETAMINE DIMESYLATE [Suspect]
     Active Substance: LISDEXAMFETAMINE DIMESYLATE
     Dosage: UNK
     Route: 048
  3. VENLAFAXINE [Concomitant]
     Active Substance: VENLAFAXINE HYDROCHLORIDE
     Dosage: UNK
     Route: 065
  4. PURON [Concomitant]
     Dosage: UNK
     Route: 065

REACTIONS (23)
  - Urticaria [Recovering/Resolving]
  - Mental impairment [Unknown]
  - Condition aggravated [Unknown]
  - General physical health deterioration [Unknown]
  - Psychiatric symptom [Unknown]
  - Acarodermatitis [Unknown]
  - Discomfort [Recovering/Resolving]
  - Crying [Unknown]
  - Job dissatisfaction [Unknown]
  - Feeling of despair [Unknown]
  - Contusion [Unknown]
  - Feeling abnormal [Unknown]
  - Quality of life decreased [Unknown]
  - Hypersomnia [Unknown]
  - Skin lesion [Not Recovered/Not Resolved]
  - Disturbance in attention [Unknown]
  - Frustration tolerance decreased [Unknown]
  - Full blood count abnormal [Unknown]
  - Mental disorder [Unknown]
  - Haematoma [Unknown]
  - Pruritus [Recovering/Resolving]
  - Anxiety [Unknown]
  - Hypersensitivity [Unknown]
